FAERS Safety Report 18800309 (Version 1)
Quarter: 2021Q1

REPORT INFORMATION
  Report Type: Spontaneous
  Country: US (occurrence: US)
  Receive Date: 20210128
  Receipt Date: 20210128
  Transmission Date: 20210419
  Serious: Yes (Other)
  Sender: FDA-Public Use
  Company Number: None

PATIENT
  Age: 36 Year
  Sex: Male
  Weight: 90.45 kg

DRUGS (1)
  1. OMNIPAQUE [Suspect]
     Active Substance: IOHEXOL
     Dosage: ?          OTHER FREQUENCY:ONE TIME INJECTION;?
     Route: 040

REACTIONS (2)
  - Histamine level increased [None]
  - Sneezing [None]

NARRATIVE: CASE EVENT DATE: 20210121
